FAERS Safety Report 9784932 (Version 2)
Quarter: 2018Q1

REPORT INFORMATION
  Report Type: Report from Study
  Country: US (occurrence: US)
  Receive Date: 20131227
  Receipt Date: 20180314
  Transmission Date: 20180509
  Serious: Yes (Other)
  Sender: FDA-Public Use
  Company Number: US-ROCHE-1321788

PATIENT
  Sex: Male
  Weight: 24.3 kg

DRUGS (6)
  1. SINGULAIR [Concomitant]
     Active Substance: MONTELUKAST SODIUM
     Dosage: EVERY BEDTIME
     Route: 065
  2. QVAR [Concomitant]
     Active Substance: BECLOMETHASONE DIPROPIONATE
     Route: 055
  3. NUTROPIN AQ [Suspect]
     Active Substance: SOMATROPIN
     Indication: FOETAL GROWTH RESTRICTION
     Route: 058
  4. NUTROPIN AQ [Suspect]
     Active Substance: SOMATROPIN
     Indication: SMALL FOR DATES BABY
     Route: 058
     Dates: start: 201003
  5. PROVENTIL [Concomitant]
     Active Substance: ALBUTEROL
  6. NUTROPIN AQ [Suspect]
     Active Substance: SOMATROPIN
     Route: 058

REACTIONS (10)
  - Asthma [Unknown]
  - Tic [Unknown]
  - Off label use [Unknown]
  - Eczema [Unknown]
  - Developmental delay [Unknown]
  - Food allergy [Unknown]
  - Prolonged expiration [Unknown]
  - Intentional product use issue [Unknown]
  - Weight gain poor [Unknown]
  - Decreased appetite [Unknown]
